FAERS Safety Report 5751191-1 (Version None)
Quarter: 2008Q2

REPORT INFORMATION
  Report Type: 
  Country: None (occurrence: None)
  Receive Date: 20080528
  Receipt Date: 20071130
  Transmission Date: 20081010
  Serious: No
  Sender: FDA-Public Use
  Company Number: US-BOEHRINGER INGELHEIM GMBH, GERMANY-2006-BP-09464BP

PATIENT
  Sex: Female
  Weight: 64 kg

DRUGS (52)
  1. MIRAPEX [Suspect]
     Indication: RESTLESS LEGS SYNDROME
     Route: 048
     Dates: start: 20040205, end: 20050701
  2. ATARAX [Concomitant]
     Indication: PRURITUS
     Dates: start: 19800808
  3. PERIACTIN [Concomitant]
     Dates: start: 19800815
  4. BENADRYL [Concomitant]
  5. CYTOMEL [Concomitant]
     Indication: ASTHENIA
     Dates: start: 20000101
  6. ZESTRIL [Concomitant]
     Indication: HYPERTENSION
     Dates: start: 20011221
  7. KLONOPIN [Concomitant]
     Indication: RESTLESS LEGS SYNDROME
     Dates: start: 20051128, end: 20060505
  8. LEXAPRO [Concomitant]
     Dates: start: 20021206
  9. TRAZODONE HCL [Concomitant]
     Route: 048
     Dates: start: 20030623
  10. DETROL LA [Concomitant]
     Dates: start: 20050324
  11. DITROPAN XL [Concomitant]
     Dates: start: 20050324
  12. COZAAR [Concomitant]
     Indication: HYPERTENSION
     Dates: start: 20070206
  13. WELLBUTRIN SR [Concomitant]
     Dates: start: 20000617
  14. REMERON [Concomitant]
     Dates: start: 20011024
  15. EFFEXOR [Concomitant]
     Dates: start: 20010706
  16. CELEXA [Concomitant]
     Indication: DEPRESSION
  17. CELEXA [Concomitant]
     Dates: start: 20070327
  18. PREMARIN [Concomitant]
     Indication: OESTROGEN REPLACEMENT THERAPY
  19. PROVIGIL [Concomitant]
     Indication: FATIGUE
     Dates: start: 20060810
  20. PROVIGIL [Concomitant]
     Indication: SLEEP APNOEA SYNDROME
  21. VIOXX [Concomitant]
  22. PRILOSEC [Concomitant]
     Indication: LARYNGITIS
  23. VITAMINS [Concomitant]
  24. CHONDO [Concomitant]
  25. TETANUS BOOSTER [Concomitant]
     Dates: start: 19950101
  26. HYDROCHLOROTHIAZIDE [Concomitant]
     Indication: FLUID RETENTION
     Dates: start: 20030101, end: 20040108
  27. NEXIUM [Concomitant]
     Indication: GASTROOESOPHAGEAL REFLUX DISEASE
  28. ESTRACE VAG CREAM [Concomitant]
     Dates: start: 20050101
  29. DITROPAN XL [Concomitant]
     Route: 048
     Dates: start: 20050505
  30. AMBIEN [Concomitant]
     Indication: INSOMNIA
  31. AMBIEN [Concomitant]
     Indication: SLEEP DISORDER
  32. ADVIL [Concomitant]
     Indication: ARTHRALGIA
  33. STOOL SOFTENER [Concomitant]
  34. MIRALAX [Concomitant]
  35. GLYCOLAX [Concomitant]
     Indication: BOWEL MOVEMENT IRREGULARITY
  36. GLYCOLAX [Concomitant]
     Indication: CONSTIPATION
  37. CITALOPRAM HYDROBROMIDE [Concomitant]
     Indication: DEPRESSION
  38. FISH OIL CAP [Concomitant]
     Indication: VITAMIN SUPPLEMENTATION
  39. ULTRAFIORA [Concomitant]
  40. CHONDRO RELIEF [Concomitant]
     Indication: ARTHROPATHY
  41. CENTRUM VITAMINS [Concomitant]
     Indication: VITAMIN SUPPLEMENTATION
  42. PERCOCET [Concomitant]
     Dates: start: 20050101
  43. LEVAQUIN [Concomitant]
     Route: 048
     Dates: start: 20050101
  44. ACIDOPHILUS [Concomitant]
     Indication: SUPPLEMENTATION THERAPY
  45. ENDURA [Concomitant]
     Indication: PHYTOTHERAPY
  46. IBUPROFEN [Concomitant]
     Indication: PAIN
     Dates: start: 20050602
  47. COLACE [Concomitant]
     Route: 048
  48. MINAFORT [Concomitant]
  49. EXHILARIN [Concomitant]
     Indication: SUPPLEMENTATION THERAPY
  50. ENDESEN [Concomitant]
     Indication: GASTROINTESTINAL DISORDER
  51. EPADHA [Concomitant]
     Indication: SUPPLEMENTATION THERAPY
  52. OXYBUTYNIN CHLORIDE [Concomitant]
     Indication: BLADDER DISORDER

REACTIONS (4)
  - COMPULSIVE SHOPPING [None]
  - DEPRESSION [None]
  - PATHOLOGICAL GAMBLING [None]
  - SUICIDAL IDEATION [None]
